FAERS Safety Report 17263449 (Version 1)
Quarter: 2020Q1

REPORT INFORMATION
  Report Type: Spontaneous
  Country: US (occurrence: US)
  Receive Date: 20200112
  Receipt Date: 20200112
  Transmission Date: 20200409
  Serious: Yes (Other)
  Sender: FDA-Public Use
  Company Number: None

PATIENT
  Age: 79 Year
  Sex: Female
  Weight: 74.25 kg

DRUGS (8)
  1. LOSARTAN. [Suspect]
     Active Substance: LOSARTAN
     Indication: BLOOD PRESSURE MEASUREMENT
     Dosage: ?          QUANTITY:1 TABLET(S);?
     Route: 048
     Dates: start: 20191130, end: 20200103
  2. ASPIRIN. [Concomitant]
     Active Substance: ASPIRIN
  3. CALCIUM [Concomitant]
     Active Substance: CALCIUM
  4. VITAMIN D3 [Concomitant]
     Active Substance: CHOLECALCIFEROL
  5. GLIPIZIDE ER [Concomitant]
     Active Substance: GLIPIZIDE
  6. VITAMIN C [Concomitant]
     Active Substance: ASCORBIC ACID
  7. MAGNESIUM [Concomitant]
     Active Substance: MAGNESIUM
  8. KRILL OIL [Concomitant]
     Active Substance: DIETARY SUPPLEMENT\KRILL OIL

REACTIONS (5)
  - Musculoskeletal chest pain [None]
  - Gastrointestinal anastomotic leak [None]
  - Decreased appetite [None]
  - Cough [None]
  - Heart rate irregular [None]

NARRATIVE: CASE EVENT DATE: 20191130
